FAERS Safety Report 7490763-3 (Version None)
Quarter: 2011Q2

REPORT INFORMATION
  Report Type: 
  Country: None (occurrence: None)
  Receive Date: 20110519
  Receipt Date: 20091226
  Transmission Date: 20111010
  Serious: Yes (Other)
  Sender: FDA-Public Use
  Company Number: US-BAYER-200943386NA

PATIENT
  Age: 56 Year
  Sex: Male
  Weight: 105 kg

DRUGS (7)
  1. HEPARIN [Concomitant]
     Dosage: UNK
     Dates: start: 20040415
  2. LIPITOR [Concomitant]
     Dosage: 80MG
     Route: 048
     Dates: start: 20040101
  3. METOPROLOL TARTRATE [Concomitant]
     Dosage: 12.5
     Route: 048
     Dates: start: 20040415
  4. PROTONIX [Concomitant]
     Dosage: 40MG
     Route: 048
     Dates: start: 20040101
  5. CAPTOPRIL [Concomitant]
     Dosage: 6.25MG
     Route: 048
     Dates: start: 20040101
  6. AMICAR [Concomitant]
     Dosage: UNK
     Dates: start: 20040415
  7. TRASYLOL [Suspect]
     Indication: CORONARY ARTERY BYPASS
     Dosage: UNK
     Route: 042
     Dates: start: 20040415

REACTIONS (5)
  - PAIN [None]
  - UNEVALUABLE EVENT [None]
  - DEPRESSION [None]
  - INJURY [None]
  - RENAL FAILURE [None]
